FAERS Safety Report 12183054 (Version 2)
Quarter: 2016Q2

REPORT INFORMATION
  Report Type: Spontaneous
  Country: US (occurrence: US)
  Receive Date: 20160316
  Receipt Date: 20160408
  Transmission Date: 20160815
  Serious: Yes (Other)
  Sender: FDA-Public Use
  Company Number: US-BAYER-2016-045456

PATIENT
  Age: 53 Year
  Sex: Female

DRUGS (49)
  1. CIPRO [Suspect]
     Active Substance: CIPROFLOXACIN HYDROCHLORIDE
     Indication: URINARY TRACT INFECTION
     Dosage: 500 MG, UNK
     Dates: start: 20131127
  2. CIPRO [Suspect]
     Active Substance: CIPROFLOXACIN HYDROCHLORIDE
     Indication: URINARY TRACT INFECTION
     Dosage: UNK
     Dates: start: 2016
  3. PHENERGAN [Concomitant]
     Active Substance: PROMETHAZINE HYDROCHLORIDE
     Indication: NAUSEA
     Dosage: 25 MG, QD AS NEEDED
  4. ZYRTEC [Concomitant]
     Active Substance: CETIRIZINE HYDROCHLORIDE
     Indication: HYPERSENSITIVITY
     Dosage: 10 MG, QD
     Route: 048
  5. CIPRO [Suspect]
     Active Substance: CIPROFLOXACIN HYDROCHLORIDE
     Indication: URINARY TRACT INFECTION
     Dosage: 500 MG, UNK
     Dates: start: 20130801
  6. CIPRO [Suspect]
     Active Substance: CIPROFLOXACIN HYDROCHLORIDE
     Indication: LYME DISEASE
     Dosage: 250 MG, UNK
     Dates: start: 20131022
  7. LEVAQUIN [Suspect]
     Active Substance: LEVOFLOXACIN
     Indication: BRONCHITIS
     Dosage: 500 MG, UNK
     Dates: start: 20130710
  8. REQUIP [Concomitant]
     Active Substance: ROPINIROLE HYDROCHLORIDE
     Dosage: UNK
  9. ROPINIROLE. [Concomitant]
     Active Substance: ROPINIROLE
     Dosage: 3 MG, HS
  10. ROPINIROLE HYDROCHLORIDE. [Concomitant]
     Active Substance: ROPINIROLE HYDROCHLORIDE
     Dosage: 1 DF, HS
  11. FLAGYL [Concomitant]
     Active Substance: METRONIDAZOLE\METRONIDAZOLE HYDROCHLORIDE
     Dosage: 500 MG, UNK
     Dates: start: 20131230
  12. AZITHROMYCIN ANHYDROUS. [Concomitant]
     Active Substance: AZITHROMYCIN ANHYDROUS
     Dosage: 250 MG, UNK
     Dates: start: 20140305
  13. BACTRIM DS [Concomitant]
     Active Substance: SULFAMETHOXAZOLE\TRIMETHOPRIM
     Indication: URINARY TRACT INFECTION
     Dosage: 160 MG, UNK
     Dates: start: 20140724
  14. MAGIUM [MAGNESIUM] [Concomitant]
     Dosage: 500 MG, UNK
  15. CIPRO [Suspect]
     Active Substance: CIPROFLOXACIN HYDROCHLORIDE
     Indication: URINARY TRACT INFECTION
     Dosage: 500 MG, UNK
     Dates: start: 20140522
  16. PREDNISONE. [Concomitant]
     Active Substance: PREDNISONE
     Dosage: 20 MG, UNK
     Dates: start: 20140328
  17. FLECTOR [Concomitant]
     Active Substance: DICLOFENAC EPOLAMINE
     Dosage: 1 PATCH EVERY 12 HOURS
  18. VOLTAREN [Concomitant]
     Active Substance: DICLOFENAC SODIUM
     Dosage: 2 G, BID
  19. IBUPROFEN. [Concomitant]
     Active Substance: IBUPROFEN
     Indication: PAIN
     Dosage: 800 MG, TID
     Route: 048
  20. ZITHROMAX [Concomitant]
     Active Substance: AZITHROMYCIN DIHYDRATE
     Dosage: 250 MG, UNK
     Dates: start: 20130724
  21. SULFAMETHOXAZOLE [Concomitant]
     Active Substance: SULFAMETHOXAZOLE
     Dosage: UNK
     Dates: start: 20140915
  22. AVELOX [Suspect]
     Active Substance: MOXIFLOXACIN HYDROCHLORIDE
     Indication: BRONCHITIS
  23. METOPROLOL SUCCINATE. [Concomitant]
     Active Substance: METOPROLOL SUCCINATE
     Dosage: 25 MG, HS
  24. AZITHROMYCIN ANHYDROUS. [Concomitant]
     Active Substance: AZITHROMYCIN ANHYDROUS
     Dosage: 250 MG, 6 POWDER SOLUTION URGENT CASE
     Dates: start: 20151224
  25. METRONIDAZOLE. [Concomitant]
     Active Substance: METRONIDAZOLE
     Dosage: 500 MG, UNK
     Dates: start: 20150707
  26. CIPRO [Suspect]
     Active Substance: CIPROFLOXACIN HYDROCHLORIDE
     Indication: URINARY TRACT INFECTION
     Dosage: 500 MG, UNK
     Dates: start: 20150707
  27. AVELOX [Suspect]
     Active Substance: MOXIFLOXACIN HYDROCHLORIDE
     Indication: LYME DISEASE
  28. DEXILANT [Concomitant]
     Active Substance: DEXLANSOPRAZOLE
     Dosage: 60 MG, HS
  29. GAMMA GLOBULIN [IMMUNOGLOBULIN] [Concomitant]
     Dosage: 28 G, X5 DAYS, EVERY 6- 8 WEEKS
  30. ZOMIG [Concomitant]
     Active Substance: ZOLMITRIPTAN
     Dosage: 5 MG 1 SPRAY AT THE ONSET OF HEADACHE AND MAY REPEAT ONCE IN AN HOUR IN NEEDED
  31. AMITRIPTYLINE [Concomitant]
     Active Substance: AMITRIPTYLINE
     Dosage: 25 MG, TID
  32. DIFLUCAN [Concomitant]
     Active Substance: FLUCONAZOLE
     Dosage: 200 MG, UNK
  33. ERYTHROMYCIN. [Concomitant]
     Active Substance: ERYTHROMYCIN
     Dosage: 250 MG, UNK
     Dates: start: 20151006
  34. CIPRO [Suspect]
     Active Substance: CIPROFLOXACIN HYDROCHLORIDE
     Indication: URINARY TRACT INFECTION
     Dosage: UNK
     Dates: start: 20160104
  35. AVELOX [Suspect]
     Active Substance: MOXIFLOXACIN HYDROCHLORIDE
     Indication: URINARY TRACT INFECTION
  36. XANAX [Concomitant]
     Active Substance: ALPRAZOLAM
     Dosage: 0.25 MG, PRN
  37. TRANSDERM SCOP [Concomitant]
     Active Substance: SCOPOLAMINE
     Dosage: 1 MG/3 DAYS APPLY 1 EVERY 72 HOURS
  38. BETAMETHASONE DIPROPIONATE. [Concomitant]
     Active Substance: BETAMETHASONE DIPROPIONATE
     Indication: RASH
     Dosage: 0.05% APPLY BID ON RASH
  39. ZITHROMAX [Concomitant]
     Active Substance: AZITHROMYCIN DIHYDRATE
     Dosage: UNK
     Dates: start: 20140325
  40. METHYLPREDNISOLONE. [Concomitant]
     Active Substance: METHYLPREDNISOLONE
     Dosage: 4 MG, UNK
     Dates: start: 2016
  41. BENADRYL [Concomitant]
     Active Substance: DIPHENHYDRAMINE HYDROCHLORIDE
     Dosage: 12 ML, UNK
  42. CIPRO [Suspect]
     Active Substance: CIPROFLOXACIN HYDROCHLORIDE
     Indication: BRONCHITIS
     Dosage: 500 MG, UNK
     Dates: start: 20130903
  43. LEVAQUIN [Suspect]
     Active Substance: LEVOFLOXACIN
     Indication: LYME DISEASE
  44. TOPROL XL [Concomitant]
     Active Substance: METOPROLOL SUCCINATE
     Dosage: 25 MG, BID
  45. LEVAQUIN [Suspect]
     Active Substance: LEVOFLOXACIN
     Indication: URINARY TRACT INFECTION
     Dosage: UNK
  46. NORTRIPTYLINE [Concomitant]
     Active Substance: NORTRIPTYLINE
  47. PREDNISONE. [Concomitant]
     Active Substance: PREDNISONE
  48. SULFAMETHOXAZOLE [Concomitant]
     Active Substance: SULFAMETHOXAZOLE
     Dosage: UNK
     Dates: start: 20150504
  49. GLUTATHIONE [Concomitant]
     Active Substance: GLUTATHIONE
     Dosage: 3 G, UNK

REACTIONS (68)
  - Memory impairment [Not Recovered/Not Resolved]
  - Adverse event [Not Recovered/Not Resolved]
  - Neuropathy peripheral [None]
  - Autoimmune disorder [None]
  - Dizziness [None]
  - Fatigue [None]
  - Joint stiffness [None]
  - Head discomfort [None]
  - Palpitations [Not Recovered/Not Resolved]
  - Gait disturbance [Not Recovered/Not Resolved]
  - Feeling abnormal [Not Recovered/Not Resolved]
  - Urinary tract infection [None]
  - Gait disturbance [None]
  - Mental impairment [None]
  - Venom poisoning [Not Recovered/Not Resolved]
  - Anxiety [None]
  - Abnormal weight gain [None]
  - Genital pain [None]
  - Abdominal pain [None]
  - Malaise [None]
  - Hypothyroidism [None]
  - Oropharyngeal pain [None]
  - Joint swelling [None]
  - Confusional state [None]
  - Mood swings [None]
  - Tremor [None]
  - Back pain [None]
  - Renal cyst [None]
  - Urinary tract infection [None]
  - Toxicity to various agents [Not Recovered/Not Resolved]
  - Renal impairment [None]
  - Pain [None]
  - Arthralgia [Not Recovered/Not Resolved]
  - Paraesthesia [None]
  - Pain in extremity [None]
  - Myalgia [None]
  - Irritability [None]
  - Fatigue [None]
  - Pyrexia [None]
  - Disorientation [Not Recovered/Not Resolved]
  - Impaired driving ability [None]
  - Hyperthermia malignant [None]
  - Bronchitis [None]
  - Asthenia [None]
  - Lymphadenopathy [None]
  - Insomnia [None]
  - Night sweats [None]
  - Cognitive disorder [None]
  - Vomiting [Not Recovered/Not Resolved]
  - Dyspnoea [None]
  - Muscle spasms [None]
  - Headache [None]
  - Cystitis [None]
  - Hepatic function abnormal [None]
  - Pain [Not Recovered/Not Resolved]
  - Pyrexia [Not Recovered/Not Resolved]
  - Hypoaesthesia [None]
  - Muscular weakness [None]
  - Panic attack [None]
  - Nausea [Not Recovered/Not Resolved]
  - Back pain [None]
  - Disturbance in attention [None]
  - Depression [None]
  - Ear pain [None]
  - Hypoacusis [None]
  - Loss of libido [None]
  - Anaemia [None]
  - Myositis [None]

NARRATIVE: CASE EVENT DATE: 20130801
